FAERS Safety Report 11079273 (Version 2)
Quarter: 2015Q2

REPORT INFORMATION
  Report Type: Report from Study
  Country: IE (occurrence: IE)
  Receive Date: 20150430
  Receipt Date: 20150528
  Transmission Date: 20150821
  Serious: Yes (Hospitalization)
  Sender: FDA-Public Use
  Company Number: IE-BRISTOL-MYERS SQUIBB COMPANY-BMS-2015-026326

PATIENT
  Age: 70 Year
  Sex: Male

DRUGS (1)
  1. IPILIMUMAB [Suspect]
     Active Substance: IPILIMUMAB
     Indication: METASTATIC MALIGNANT MELANOMA
     Dosage: 3 MG/KG, Q3WK
     Route: 042
     Dates: start: 20150324

REACTIONS (6)
  - Metastases to central nervous system [Unknown]
  - Sensory disturbance [Unknown]
  - Fatigue [Unknown]
  - Brain oedema [Unknown]
  - Ocular hyperaemia [Unknown]
  - Skin disorder [Unknown]

NARRATIVE: CASE EVENT DATE: 20150425
